FAERS Safety Report 10784507 (Version 1)
Quarter: 2015Q1

REPORT INFORMATION
  Report Type: Spontaneous
  Country: US (occurrence: None)
  Receive Date: 20150209
  Receipt Date: 20150209
  Transmission Date: 20150721
  Serious: Yes (Disabling, Other)
  Sender: FDA-Public Use
  Company Number: None

PATIENT
  Age: 66 Year
  Sex: Female
  Weight: 71.22 kg

DRUGS (1)
  1. PEG 3350 [Suspect]
     Active Substance: POLYETHYLENE GLYCOL 3350
     Indication: COLONOSCOPY
     Dosage: 64 OZS WHEN MIXED WITH WATER  UNTIL GONE TAKEN BY MOOUTH
     Route: 048
     Dates: start: 20150203, end: 20150204

REACTIONS (7)
  - Chills [None]
  - Abdominal distension [None]
  - Weight increased [None]
  - Abdominal pain [None]
  - Feeling cold [None]
  - Diarrhoea [None]
  - Pyrexia [None]

NARRATIVE: CASE EVENT DATE: 20150204
